FAERS Safety Report 16673935 (Version 1)
Quarter: 2019Q3

REPORT INFORMATION
  Report Type: Spontaneous
  Country: ES (occurrence: ES)
  Receive Date: 20190806
  Receipt Date: 20190806
  Transmission Date: 20191004
  Serious: Yes (Hospitalization)
  Sender: FDA-Public Use
  Company Number: ES-MYLANLABS-2019M1072819

PATIENT
  Age: 76 Year
  Sex: Female

DRUGS (1)
  1. MYCOPHENOLATE MOFETIL. [Suspect]
     Active Substance: MYCOPHENOLATE MOFETIL
     Indication: PRODUCT USED FOR UNKNOWN INDICATION
     Dosage: 1.5 GRAM, QD (1.5 G, QD)
     Route: 065

REACTIONS (1)
  - Hepatic encephalopathy [Recovering/Resolving]
